FAERS Safety Report 4833301-3 (Version None)
Quarter: 2005Q4

REPORT INFORMATION
  Report Type: 
  Country: None (occurrence: None)
  Receive Date: 20051117
  Receipt Date: 20051109
  Transmission Date: 20060501
  Serious: Yes (Other)
  Sender: FDA-Public Use
  Company Number: FR-2005-023450

PATIENT
  Age: 37 Year
  Sex: Female

DRUGS (3)
  1. BETAFERON                         (INTERFERON BETA -1B) [Suspect]
     Indication: MULTIPLE SCLEROSIS
     Dosage: 8 MI, 3X/WEEK, SUBCUTANEOUS
     Route: 058
     Dates: start: 20001110
  2. LIORESAL [Concomitant]
  3. LEVOTHYROXINE SODIUM [Concomitant]

REACTIONS (1)
  - RETROPERITONEAL FIBROSIS [None]
